FAERS Safety Report 6546525-4 (Version None)
Quarter: 2010Q1

REPORT INFORMATION
  Report Type: 
  Country: None (occurrence: None)
  Receive Date: 20100119
  Receipt Date: 20091230
  Transmission Date: 20100710
  Serious: No
  Sender: FDA-Public Use
  Company Number: 2009-00920

PATIENT
  Age: 60 Year
  Sex: Male
  Weight: 90.7194 kg

DRUGS (1)
  1. COLD REMEDY RAPID MELTS WITH VITAMIN C [Suspect]
     Dosage: QID - ^ABOUT A WEEK^
     Dates: start: 20091223, end: 20091228

REACTIONS (3)
  - AGEUSIA [None]
  - HYPOAESTHESIA ORAL [None]
  - SWOLLEN TONGUE [None]
